FAERS Safety Report 12731036 (Version 1)
Quarter: 2016Q3

REPORT INFORMATION
  Report Type: Spontaneous
  Country: BR (occurrence: BR)
  Receive Date: 20160912
  Receipt Date: 20160912
  Transmission Date: 20161109
  Serious: Yes (Hospitalization, Other)
  Sender: FDA-Public Use
  Company Number: BR-BRISTOL-MYERS SQUIBB COMPANY-BMS-2016-073994

PATIENT
  Age: 81 Year
  Sex: Female
  Weight: 45.5 kg

DRUGS (3)
  1. AAS [Concomitant]
     Active Substance: ASPIRIN
     Indication: THROMBOSIS PROPHYLAXIS
     Dosage: 1 DF, QD
     Route: 048
  2. ELIQUIS [Suspect]
     Active Substance: APIXABAN
     Indication: PRODUCT USED FOR UNKNOWN INDICATION
     Dosage: 1 TAB, Q12H
     Route: 048
     Dates: start: 20160810
  3. VASLIP                             /00848101/ [Concomitant]
     Indication: BLOOD CHOLESTEROL
     Dosage: 1 TAB, QD
     Route: 048

REACTIONS (6)
  - Feeling abnormal [Unknown]
  - Head discomfort [Unknown]
  - Dyspnoea [Unknown]
  - Anxiety [Unknown]
  - Mitral valve disease [Unknown]
  - Arrhythmia [Unknown]

NARRATIVE: CASE EVENT DATE: 20160813
